FAERS Safety Report 5226477-X (Version None)
Quarter: 2007Q1

REPORT INFORMATION
  Report Type: 
  Country: None (occurrence: None)
  Receive Date: 20070201
  Receipt Date: 20070123
  Transmission Date: 20070707
  Serious: Yes (Hospitalization)
  Sender: FDA-Public Use
  Company Number: 2007CG00159

PATIENT
  Age: 69 Year
  Sex: Male

DRUGS (2)
  1. NEXIUM [Suspect]
     Route: 048
     Dates: start: 20061118, end: 20061207
  2. OXACILLIN [Suspect]
     Route: 042
     Dates: start: 20061116, end: 20061207

REACTIONS (2)
  - RENAL FAILURE ACUTE [None]
  - RENAL TUBULAR DISORDER [None]
